FAERS Safety Report 14150597 (Version 2)
Quarter: 2017Q4

REPORT INFORMATION
  Report Type: Other
  Country: GB (occurrence: NL)
  Receive Date: 20171101
  Receipt Date: 20171108
  Transmission Date: 20180321
  Serious: Yes (Death, Life-Threatening, Other)
  Sender: FDA-Public Use
  Company Number: NL-INTERNATIONAL MEDICATION SYSTEMS, LIMITED-2032999

PATIENT
  Age: 63 Year
  Sex: Male
  Weight: 91 kg

DRUGS (6)
  1. NADROPARIN [Concomitant]
     Active Substance: NADROPARIN
     Route: 058
     Dates: start: 20160905
  2. HEPARIN [Concomitant]
     Active Substance: HEPARIN SODIUM
     Route: 042
     Dates: end: 20160907
  3. TISSUE PLASMINOGEN ACTIVATOR [Concomitant]
     Active Substance: ALTEPLASE
     Route: 042
  4. ACENOCOUMAROL [Concomitant]
     Active Substance: ACENOCOUMAROL
     Dates: start: 201609
  5. OXYGEN. [Concomitant]
     Active Substance: OXYGEN
     Dates: start: 201609
  6. EPINEPHRINE. [Suspect]
     Active Substance: EPINEPHRINE
     Indication: CARDIAC ARREST
     Route: 042

REACTIONS (2)
  - Drug ineffective [Fatal]
  - Death [Fatal]

NARRATIVE: CASE EVENT DATE: 20160907
